FAERS Safety Report 5735141-X (Version None)
Quarter: 2008Q2

REPORT INFORMATION
  Report Type: 
  Country: None (occurrence: None)
  Receive Date: 20080512
  Receipt Date: 20080505
  Transmission Date: 20081010
  Serious: Yes (Other)
  Sender: FDA-Public Use
  Company Number: PHHY2008IT06045

PATIENT
  Age: 18 Year
  Sex: Female

DRUGS (5)
  1. EXJADE [Suspect]
     Indication: IRON OVERLOAD
     Dosage: 30 MG/KG DAILY
     Route: 048
     Dates: start: 20020901
  2. ORAL REHYDRATION SALT [Concomitant]
  3. BRUFEN [Concomitant]
  4. CIPROFLOXACIN HCL [Concomitant]
     Dosage: 375 MG, BID
  5. CIPROFLOXACIN HCL [Concomitant]
     Dosage: 250 MG, BID

REACTIONS (6)
  - BACTERIAL CULTURE POSITIVE [None]
  - DIARRHOEA [None]
  - POLYMERASE CHAIN REACTION [None]
  - PYREXIA [None]
  - VOMITING [None]
  - YERSINIA INFECTION [None]
